FAERS Safety Report 12733957 (Version 2)
Quarter: 2016Q3

REPORT INFORMATION
  Report Type: Spontaneous
  Country: US (occurrence: US)
  Receive Date: 20160912
  Receipt Date: 20160915
  Transmission Date: 20161109
  Serious: Yes (Life-Threatening, Hospitalization, Other)
  Sender: FDA-Public Use
  Company Number: US-ROCHE-1828616

PATIENT
  Age: 74 Year
  Sex: Female
  Weight: 73.09 kg

DRUGS (5)
  1. GEMZAR [Concomitant]
     Active Substance: GEMCITABINE HYDROCHLORIDE
     Indication: OVARIAN CANCER
  2. CISPLATIN. [Concomitant]
     Active Substance: CISPLATIN
     Indication: OVARIAN CANCER
  3. AVASTIN [Suspect]
     Active Substance: BEVACIZUMAB
     Dosage: D1, D15
     Route: 042
     Dates: start: 20151013, end: 20160810
  4. AVASTIN [Suspect]
     Active Substance: BEVACIZUMAB
     Indication: OVARIAN CANCER
     Route: 042
     Dates: start: 2015, end: 2016
  5. TOPOTECAN [Concomitant]
     Active Substance: TOPOTECAN\TOPOTECAN HYDROCHLORIDE
     Indication: OVARIAN CANCER

REACTIONS (6)
  - Seizure [Recovered/Resolved with Sequelae]
  - Visual impairment [Unknown]
  - Posterior reversible encephalopathy syndrome [Recovered/Resolved]
  - Carbohydrate antigen 125 increased [Unknown]
  - Hypertension [Recovered/Resolved with Sequelae]
  - Off label use [Unknown]

NARRATIVE: CASE EVENT DATE: 20160727
